FAERS Safety Report 4358073-0 (Version None)
Quarter: 2004Q2

REPORT INFORMATION
  Report Type: 
  Country: None (occurrence: None)
  Receive Date: 20040510
  Receipt Date: 20040427
  Transmission Date: 20050107
  Serious: Yes (Other)
  Sender: FDA-Public Use
  Company Number: US-JNJFOC-20040405869

PATIENT
  Age: 52 Year
  Sex: Female

DRUGS (15)
  1. INFLIXIMAB (INFLIXIMAB, RECOMBINANT) LYOPHILIZED POWDER [Suspect]
     Indication: RHEUMATOID ARTHRITIS
     Dosage: INTRAVENOUS
     Route: 042
     Dates: start: 20020724
  2. AMITRIPTYLINE HCL [Concomitant]
  3. ARAVA [Concomitant]
  4. CYCLOBENZAPRINE HCL [Concomitant]
  5. FOLIC ACID [Concomitant]
  6. FUROSEMDIE (FUROSEMIDE) [Concomitant]
  7. MULTIVITAMIN (MULTIVITAMINS) [Concomitant]
  8. OXYCODONE HCL [Concomitant]
  9. PREDNISONE [Concomitant]
  10. PLAQUENIL [Concomitant]
  11. ULTRACET [Concomitant]
  12. VICOPROFEN (VICOPROFEN) [Concomitant]
  13. VERAPAMIL [Concomitant]
  14. LIDODERM  (LIDOCAINE) [Concomitant]
  15. ALBUTEROL [Concomitant]

REACTIONS (2)
  - HEPATIC ENZYME INCREASED [None]
  - INFLUENZA LIKE ILLNESS [None]
